FAERS Safety Report 9820739 (Version 1)
Quarter: 2013Q4

REPORT INFORMATION
  Report Type: Spontaneous
  Country: US (occurrence: None)
  Receive Date: 20131028
  Receipt Date: 20131028
  Transmission Date: 20140711
  Serious: Yes (Other)
  Sender: FDA-Public Use
  Company Number: 2013US001163

PATIENT
  Age: 40 Year
  Sex: Female
  Weight: 110.7 kg

DRUGS (1)
  1. ICLUSIG [Suspect]
     Indication: CHRONIC MYELOID LEUKAEMIA
     Route: 048
     Dates: start: 20130202, end: 20130207

REACTIONS (9)
  - Pain in jaw [None]
  - Abdominal pain upper [None]
  - Headache [None]
  - Fatigue [None]
  - Pain [None]
  - Chills [None]
  - Rash [None]
  - Hepatic enzyme increased [None]
  - Heart rate increased [None]
